FAERS Safety Report 7884524-0 (Version None)
Quarter: 2011Q4

REPORT INFORMATION
  Report Type: 
  Country: None (occurrence: None)
  Receive Date: 20111102
  Receipt Date: 20111020
  Transmission Date: 20120403
  Serious: Yes (Other)
  Sender: FDA-Public Use
  Company Number: CA-JNJFOC-20111010867

PATIENT
  Sex: Male
  Weight: 96.2 kg

DRUGS (2)
  1. REMICADE [Suspect]
     Route: 042
     Dates: start: 20000408
  2. REMICADE [Suspect]
     Indication: PSORIASIS
     Route: 042
     Dates: start: 20111019

REACTIONS (6)
  - INFUSION RELATED REACTION [None]
  - CHILLS [None]
  - BLOOD PRESSURE INCREASED [None]
  - DISCOMFORT [None]
  - TREMOR [None]
  - BODY TEMPERATURE INCREASED [None]
